FAERS Safety Report 13296219 (Version 11)
Quarter: 2022Q1

REPORT INFORMATION
  Report Type: Spontaneous
  Country: FR (occurrence: FR)
  Receive Date: 20170304
  Receipt Date: 20220201
  Transmission Date: 20220423
  Serious: Yes (Death, Hospitalization, Other)
  Sender: FDA-Public Use
  Company Number: AUR-APL-2018-016639

PATIENT
  Age: 71 Year
  Sex: Male
  Weight: 113.4 kg

DRUGS (51)
  1. BUDESONIDE [Suspect]
     Active Substance: BUDESONIDE
     Indication: Product used for unknown indication
     Dosage: 1 DOSAGE FORM, ONCE A DAY
     Route: 055
     Dates: start: 20161220, end: 20170119
  2. LINEZOLID [Suspect]
     Active Substance: LINEZOLID
     Indication: Chest scan
     Dosage: 600 MILLIGRAM, TWO TIMES A DAY
     Route: 048
     Dates: start: 20161222, end: 20170110
  3. LINEZOLID [Suspect]
     Active Substance: LINEZOLID
     Indication: Skin infection
  4. LINEZOLID [Suspect]
     Active Substance: LINEZOLID
     Indication: Skin infection
     Dosage: 2 DOSAGE FORM, ONCE A DAY
     Route: 048
     Dates: start: 20161222, end: 20170110
  5. LINEZOLID [Suspect]
     Active Substance: LINEZOLID
     Indication: Chest scan
     Dosage: 1200 MILLIGRAM, ONCE A DAY
     Route: 048
     Dates: start: 20161222, end: 20170110
  6. PANTOPRAZOLE [Suspect]
     Active Substance: PANTOPRAZOLE
     Indication: Chest scan
     Dosage: UNK
     Route: 042
     Dates: start: 20161225, end: 20170119
  7. PANTOPRAZOLE [Suspect]
     Active Substance: PANTOPRAZOLE
     Indication: Skin infection
  8. RACECADOTRIL [Suspect]
     Active Substance: RACECADOTRIL
     Indication: Chest scan
     Dosage: 1 DOSAGE FORM, 3 TIMES A DAY
     Route: 048
     Dates: start: 20161209, end: 20170119
  9. RACECADOTRIL [Suspect]
     Active Substance: RACECADOTRIL
     Indication: Skin infection
     Dosage: 300 MILLIGRAM, ONCE A DAY (100 300 MILLIGRAM, 3 TIMES A DAY)
     Route: 048
     Dates: start: 20161209, end: 20170119
  10. ACETAMINOPHEN\TRAMADOL [Suspect]
     Active Substance: ACETAMINOPHEN\TRAMADOL
     Indication: Chest scan
     Dosage: 8 DOSAGE FORM, ONCE A DAY
     Route: 048
     Dates: start: 20161201, end: 20170119
  11. ACETAMINOPHEN\TRAMADOL [Suspect]
     Active Substance: ACETAMINOPHEN\TRAMADOL
     Indication: Skin infection
  12. QUESTRAN [Suspect]
     Active Substance: CHOLESTYRAMINE
     Indication: Skin infection
     Dosage: 1 DOSAGE FORM, ONCE A DAY (4 GRAM)
     Route: 048
     Dates: start: 20161216, end: 20170119
  13. QUESTRAN [Suspect]
     Active Substance: CHOLESTYRAMINE
     Indication: Chest scan
     Dosage: 4 GRAM, ONCE A DAY
     Route: 048
     Dates: start: 20161216, end: 20170119
  14. RIFADIN [Suspect]
     Active Substance: RIFAMPIN
     Indication: Chest scan
     Dosage: UNK
     Route: 065
  15. RIFADIN [Suspect]
     Active Substance: RIFAMPIN
     Indication: Skin infection
  16. ULTRAVIST [Suspect]
     Active Substance: IOPROMIDE
     Indication: Computerised tomogram thorax
     Dosage: 370 MILLIGRAM
     Route: 042
     Dates: start: 20170116, end: 20170116
  17. ULTRAVIST [Suspect]
     Active Substance: IOPROMIDE
     Indication: Chest scan
  18. ULTRAVIST [Suspect]
     Active Substance: IOPROMIDE
     Indication: Skin infection
  19. CUBICIN [Suspect]
     Active Substance: DAPTOMYCIN
     Indication: Chest scan
     Dosage: 800 MILLIGRAM, ONCE A DAY
     Route: 042
     Dates: start: 20170110, end: 20170201
  20. CUBICIN [Suspect]
     Active Substance: DAPTOMYCIN
     Indication: Skin infection
  21. PRIMPERAN [Suspect]
     Active Substance: METOCLOPRAMIDE HYDROCHLORIDE
     Indication: Skin infection
     Dosage: 3 DOSAGE FORM, 3 TIMES A DAY (3 DF, TID ( 1 DF TID))
     Route: 048
     Dates: start: 20161224, end: 20170119
  22. PRIMPERAN [Suspect]
     Active Substance: METOCLOPRAMIDE HYDROCHLORIDE
     Indication: Chest scan
     Dosage: 30 MILLIGRAM, ONCE A DAY (10 MG, 3 TIMES A DAY)
     Route: 048
     Dates: start: 20161224, end: 20170119
  23. PIPERACILLIN AND TAZOBACTAM [Suspect]
     Active Substance: PIPERACILLIN SODIUM\TAZOBACTAM SODIUM
     Indication: Skin infection
     Dosage: 3 DOSAGE FORM, ONCE A DAY
     Route: 042
     Dates: start: 20161204, end: 20170130
  24. PIPERACILLIN AND TAZOBACTAM [Suspect]
     Active Substance: PIPERACILLIN SODIUM\TAZOBACTAM SODIUM
     Indication: Chest scan
  25. SYMBICORT [Suspect]
     Active Substance: BUDESONIDE\FORMOTEROL FUMARATE DIHYDRATE
     Indication: Product used for unknown indication
     Dosage: 1 DOSAGE FORM, ONCE A DAY
     Dates: start: 20161220, end: 20170119
  26. CHOLESTYRAMINE [Suspect]
     Active Substance: CHOLESTYRAMINE
     Indication: Chest scan
     Dosage: 1 DOSAGE FORM, ONCE A DAY
     Route: 048
     Dates: start: 20161216, end: 20170119
  27. CHOLESTYRAMINE [Suspect]
     Active Substance: CHOLESTYRAMINE
     Indication: Skin infection
  28. METOCLOPRAMIDE HYDROCHLORIDE [Suspect]
     Active Substance: METOCLOPRAMIDE HYDROCHLORIDE
     Indication: Skin infection
     Dosage: 30 MILLIGRAM, ONCE A DAY
     Route: 048
  29. METOCLOPRAMIDE HYDROCHLORIDE [Suspect]
     Active Substance: METOCLOPRAMIDE HYDROCHLORIDE
     Indication: Chest scan
  30. VANCOMYCIN HYDROCHLORIDE [Suspect]
     Active Substance: VANCOMYCIN HYDROCHLORIDE
     Indication: Chest scan
     Dosage: UNK
     Route: 065
  31. VANCOMYCIN HYDROCHLORIDE [Suspect]
     Active Substance: VANCOMYCIN HYDROCHLORIDE
     Indication: Skin infection
  32. RIFAMPIN [Suspect]
     Active Substance: RIFAMPIN
     Indication: Chest scan
     Dosage: UNK
     Route: 065
  33. RIFAMPIN [Suspect]
     Active Substance: RIFAMPIN
     Indication: Skin infection
  34. DAPTOMYCIN [Suspect]
     Active Substance: DAPTOMYCIN
     Indication: Skin infection
     Dosage: 800 MILLIGRAM, ONCE A DAY
     Route: 042
     Dates: start: 20170110, end: 20170201
  35. DAPTOMYCIN [Suspect]
     Active Substance: DAPTOMYCIN
     Indication: Chest scan
  36. NEFOPAM [Suspect]
     Active Substance: NEFOPAM
     Indication: Chest scan
     Dosage: UNK
     Route: 042
     Dates: start: 20161202, end: 20170119
  37. NEFOPAM [Suspect]
     Active Substance: NEFOPAM
     Indication: Skin infection
  38. FORMOTEROL [Suspect]
     Active Substance: FORMOTEROL
     Indication: Product used for unknown indication
     Dosage: 1 DOSAGE FORM
     Dates: start: 20161220, end: 20170119
  39. DUPHALAC [Concomitant]
     Active Substance: LACTULOSE
     Indication: Product used for unknown indication
     Dosage: UNK
     Route: 016
  40. POTASSIUM CHLORIDE [Concomitant]
     Active Substance: POTASSIUM CHLORIDE
     Indication: Product used for unknown indication
     Dosage: UNK
     Route: 065
  41. KARDEGIC [Concomitant]
     Active Substance: ASPIRIN DL-LYSINE
     Indication: Product used for unknown indication
     Dosage: UNK
     Route: 065
  42. LOVENOX [Concomitant]
     Active Substance: ENOXAPARIN SODIUM
     Indication: Product used for unknown indication
     Dosage: 4000 INTERNATIONAL UNIT (4000 IU ANTI-XA / 0.4 ML,)
     Route: 065
     Dates: start: 20170114
  43. POLARAMINE [Concomitant]
     Active Substance: DEXCHLORPHENIRAMINE MALEATE
     Indication: Product used for unknown indication
     Dosage: UNK
     Route: 065
  44. LANTUS [Concomitant]
     Active Substance: INSULIN GLARGINE
     Indication: Product used for unknown indication
     Dosage: UNK
     Route: 065
  45. INSULIN HUMAN [Concomitant]
     Active Substance: INSULIN HUMAN
     Indication: Product used for unknown indication
     Dosage: INSULIN HUMAN ZINC SUSPENSION (AMORPHOUS) ()
     Route: 065
  46. LOPERAMIDE [Concomitant]
     Active Substance: LOPERAMIDE
     Indication: Product used for unknown indication
     Dosage: UNK
     Route: 065
  47. FUROSEMIDE [Concomitant]
     Active Substance: FUROSEMIDE
     Indication: Product used for unknown indication
     Dosage: UNK
     Route: 065
  48. Lopram [Concomitant]
     Indication: Product used for unknown indication
     Dosage: UNK
     Route: 065
  49. INSULIN HUMAN [Concomitant]
     Active Substance: INSULIN HUMAN
     Indication: Product used for unknown indication
     Dosage: UNK
     Route: 065
  50. POTASSIUM CHLORIDE [Concomitant]
     Active Substance: POTASSIUM CHLORIDE
     Indication: Product used for unknown indication
     Dosage: UNK
     Route: 065
  51. LEVOFLOXACIN [Concomitant]
     Active Substance: LEVOFLOXACIN
     Indication: Product used for unknown indication
     Dosage: UNK
     Route: 065

REACTIONS (18)
  - Sepsis [Fatal]
  - Rash maculo-papular [Fatal]
  - Hepatic encephalopathy [Fatal]
  - Dyspnoea [Fatal]
  - Diffuse alveolar damage [Fatal]
  - Thrombocytopenia [Fatal]
  - Rectal haemorrhage [Fatal]
  - Eosinophilia [Fatal]
  - Death [Fatal]
  - Acute kidney injury [Fatal]
  - Restlessness [Fatal]
  - Eczema [Fatal]
  - Eosinophilic pneumonia [Fatal]
  - Glomerular filtration rate decreased [Fatal]
  - Hyperammonaemia [Fatal]
  - Pulmonary interstitial emphysema syndrome [Fatal]
  - Alveolar lung disease [Fatal]
  - Generalised oedema [Fatal]

NARRATIVE: CASE EVENT DATE: 20161227
